FAERS Safety Report 24872939 (Version 2)
Quarter: 2025Q1

REPORT INFORMATION
  Report Type: Spontaneous
  Country: US (occurrence: US)
  Receive Date: 20250122
  Receipt Date: 20250127
  Transmission Date: 20250408
  Serious: Yes (Hospitalization)
  Sender: NOVITIUM PHARMA
  Company Number: US-NOVITIUMPHARMA-2025USNVP00181

PATIENT
  Age: 22 Month
  Sex: Female
  Weight: 27 kg

DRUGS (7)
  1. LEVOCARNITINE [Suspect]
     Active Substance: LEVOCARNITINE
     Indication: Metabolic disorder
     Route: 048
     Dates: start: 20240908
  2. PANTOPRAZOLE [Concomitant]
     Active Substance: PANTOPRAZOLE
     Route: 048
     Dates: start: 202305
  3. SODIUM BENZOATE [Concomitant]
     Active Substance: SODIUM BENZOATE
     Route: 048
     Dates: start: 202305
  4. EPIDIOLEX [Concomitant]
     Active Substance: CANNABIDIOL
     Indication: Seizure
     Route: 048
     Dates: start: 202305
  5. XCOPRI [Concomitant]
     Active Substance: CENOBAMATE
     Indication: Seizure
     Route: 048
     Dates: start: 202305
  6. CLOBAZAM [Concomitant]
     Active Substance: CLOBAZAM
     Indication: Seizure
     Route: 048
     Dates: start: 202305
  7. BRIVIACT [Concomitant]
     Active Substance: BRIVARACETAM
     Indication: Seizure
     Route: 048
     Dates: start: 202305

REACTIONS (5)
  - Abdominal pain upper [Recovering/Resolving]
  - Nasopharyngitis [Recovering/Resolving]
  - Dyspnoea [Recovering/Resolving]
  - Incorrect product administration duration [Unknown]
  - Product odour abnormal [Unknown]
